FAERS Safety Report 17075237 (Version 1)
Quarter: 2019Q4

REPORT INFORMATION
  Report Type: Spontaneous
  Country: US (occurrence: US)
  Receive Date: 20191126
  Receipt Date: 20191126
  Transmission Date: 20200122
  Serious: Yes (Hospitalization)
  Sender: FDA-Public Use
  Company Number: US-PERRIGO-19US013964

PATIENT
  Age: 40 Year
  Sex: Female

DRUGS (1)
  1. HYDROMORPHONE HYDROCHLORIDE. [Suspect]
     Active Substance: HYDROMORPHONE HYDROCHLORIDE
     Indication: PAIN
     Dosage: UNKNOWN, SINGLE
     Route: 042

REACTIONS (3)
  - Vasculitis [Recovering/Resolving]
  - Incorrect route of product administration [Recovered/Resolved]
  - Renal failure [Recovering/Resolving]
